FAERS Safety Report 16907367 (Version 1)
Quarter: 2019Q4

REPORT INFORMATION
  Report Type: Spontaneous
  Country: US (occurrence: US)
  Receive Date: 20190819
  Receipt Date: 20190819
  Transmission Date: 20200122
  Serious: No
  Sender: FDA-Public Use
  Company Number: None

PATIENT
  Age: 57 Year
  Sex: Female

DRUGS (1)
  1. GLEEVEC [Suspect]
     Active Substance: IMATINIB MESYLATE
     Indication: LEUKAEMIA
     Route: 048
     Dates: start: 20180113

REACTIONS (5)
  - Arthralgia [None]
  - Influenza like illness [None]
  - Headache [None]
  - Depression [None]
  - Swelling face [None]

NARRATIVE: CASE EVENT DATE: 20180113
